FAERS Safety Report 4483913-4 (Version None)
Quarter: 2004Q4

REPORT INFORMATION
  Report Type: 
  Country: None (occurrence: None)
  Receive Date: 20041025
  Receipt Date: 20041011
  Transmission Date: 20050328
  Serious: Yes (Hospitalization)
  Sender: FDA-Public Use
  Company Number: PHBS2004US13719

PATIENT
  Age: 53 Year
  Sex: Female

DRUGS (9)
  1. CARBAMAZEPINE [Suspect]
     Indication: CLUSTER HEADACHE
     Route: 048
  2. HYDROCORTISONE [Suspect]
     Indication: CLUSTER HEADACHE
     Route: 042
  3. VERAPAMIL [Concomitant]
     Indication: CLUSTER HEADACHE
     Route: 048
  4. LITHIUM [Concomitant]
     Indication: CLUSTER HEADACHE
     Route: 048
  5. PREDNISONE [Concomitant]
     Dosage: 20 MG/DAY
  6. SUMATRIPTAN [Concomitant]
     Route: 058
  7. DIHYDROERGOTAMINE MESYLATE [Concomitant]
  8. CHLORPROMAZINE [Concomitant]
  9. ANAESTHETICS, LOCAL [Suspect]

REACTIONS (16)
  - BLEPHAROSPASM [None]
  - CHRONIC PAROXYSMAL HEMICRANIA [None]
  - CLUSTER HEADACHE [None]
  - CONJUNCTIVAL HYPERAEMIA [None]
  - DISEASE RECURRENCE [None]
  - EMOTIONAL DISORDER [None]
  - EYE PAIN [None]
  - GAZE PALSY [None]
  - LACRIMATION INCREASED [None]
  - NASAL CONGESTION [None]
  - NERVE BLOCK [None]
  - NEURALGIA [None]
  - POST PROCEDURAL COMPLICATION [None]
  - REFUSAL OF TREATMENT BY PATIENT [None]
  - SUNCT SYNDROME [None]
  - TREMOR [None]
